FAERS Safety Report 11241974 (Version 1)
Quarter: 2015Q3

REPORT INFORMATION
  Report Type: Spontaneous
  Country: IN (occurrence: IN)
  Receive Date: 20150706
  Receipt Date: 20150706
  Transmission Date: 20151125
  Serious: Yes (Hospitalization)
  Sender: FDA-Public Use
  Company Number: IN-MYLANLABS-2015M1021814

PATIENT

DRUGS (11)
  1. PIPERACILLIN AND TAZOBACTAM [Concomitant]
     Active Substance: PIPERACILLIN SODIUM\TAZOBACTAM SODIUM
     Dosage: 5MG
     Route: 065
  2. ATORVASTATIN [Concomitant]
     Active Substance: ATORVASTATIN
     Dosage: 20MG
     Route: 065
  3. DIGOXIN. [Concomitant]
     Active Substance: DIGOXIN
     Route: 065
  4. RANOLAZINE [Interacting]
     Active Substance: RANOLAZINE
     Indication: ANGINA PECTORIS
     Route: 065
  5. CARVEDILOL. [Concomitant]
     Active Substance: CARVEDILOL
     Route: 065
  6. ASPIRIN                            /00002701/ [Concomitant]
     Active Substance: ASPIRIN
     Dosage: 75MG
     Route: 065
  7. TORASEMIDE [Concomitant]
     Active Substance: TORSEMIDE
     Dosage: 5MG
     Route: 065
  8. CLARITHROMYCIN. [Suspect]
     Active Substance: CLARITHROMYCIN
     Indication: PNEUMONIA
     Route: 065
  9. CLOPIDOGREL [Concomitant]
     Active Substance: CLOPIDOGREL BISULFATE
     Dosage: 75MG
     Route: 065
  10. IVABRADINE [Concomitant]
     Active Substance: IVABRADINE
     Dosage: 5MG
     Route: 065
  11. ISOSORBIDE MONONITRATE. [Concomitant]
     Active Substance: ISOSORBIDE MONONITRATE
     Dosage: 5MG
     Route: 065

REACTIONS (7)
  - Ataxia [Recovered/Resolved]
  - Drug interaction [Recovered/Resolved]
  - Cerebellar syndrome [Recovered/Resolved]
  - Confusional state [Recovered/Resolved]
  - Drug prescribing error [Recovered/Resolved]
  - Dysarthria [Recovered/Resolved]
  - Hallucination, visual [Recovered/Resolved]
